FAERS Safety Report 5340587-8 (Version None)
Quarter: 2007Q2

REPORT INFORMATION
  Report Type: 
  Country: None (occurrence: None)
  Receive Date: 20070405
  Receipt Date: 20070129
  Transmission Date: 20071010
  Serious: No
  Sender: FDA-Public Use
  Company Number: US200701005728

PATIENT
  Age: 44 Year
  Sex: Female

DRUGS (3)
  1. CYMBALTA [Suspect]
     Indication: CROHN'S DISEASE
     Dosage: 30 MG, DAILY (1/D)
     Dates: start: 20070122, end: 20070101
  2. LUNESTA [Concomitant]
  3. NEURONTIN [Concomitant]

REACTIONS (2)
  - FEAR [None]
  - MYDRIASIS [None]
